FAERS Safety Report 12539742 (Version 1)
Quarter: 2016Q3

REPORT INFORMATION
  Report Type: Spontaneous
  Country: US (occurrence: None)
  Receive Date: 20160707
  Receipt Date: 20160707
  Transmission Date: 20161109
  Serious: No
  Sender: FDA-Public Use
  Company Number: None

PATIENT
  Sex: Female

DRUGS (1)
  1. ALEVE [Suspect]
     Active Substance: NAPROXEN SODIUM

REACTIONS (7)
  - Thrombosis [None]
  - Vision blurred [None]
  - Decreased appetite [None]
  - Pain in extremity [None]
  - Arthritis [None]
  - Blood glucose increased [None]
  - Blood iron decreased [None]
